FAERS Safety Report 23520893 (Version 1)
Quarter: 2024Q1

REPORT INFORMATION
  Report Type: Spontaneous
  Country: BR (occurrence: BR)
  Receive Date: 20240214
  Receipt Date: 20240214
  Transmission Date: 20240409
  Serious: Yes (Hospitalization, Other)
  Sender: FDA-Public Use
  Company Number: BR-SA-SAC20240213000444

PATIENT
  Age: 50 Year
  Sex: Female

DRUGS (3)
  1. THYROGEN [Suspect]
     Active Substance: THYROTROPIN ALFA
     Dosage: 2 DF, QD
     Route: 030
     Dates: start: 20231121, end: 20231122
  2. SODIUM IODIDE I-131 [Concomitant]
     Active Substance: SODIUM IODIDE I-131
     Dosage: 3 MCI
     Route: 048
     Dates: start: 20231123, end: 20231123
  3. CORTICOSTEROID NOS [Concomitant]
     Active Substance: CORTICOSTEROID NOS
     Indication: Proteinuria
     Dosage: UNK

REACTIONS (10)
  - Glomerulonephritis [Unknown]
  - Respiratory distress [Unknown]
  - Condition aggravated [Unknown]
  - Abdominal distension [Unknown]
  - Abdominal discomfort [Unknown]
  - Oedema peripheral [Unknown]
  - Weight increased [Unknown]
  - Blood thyroid stimulating hormone abnormal [Not Recovered/Not Resolved]
  - Gastrointestinal disorder [Unknown]
  - Fatigue [Unknown]

NARRATIVE: CASE EVENT DATE: 20231122
